FAERS Safety Report 4987665-0 (Version None)
Quarter: 2006Q2

REPORT INFORMATION
  Report Type: 
  Country: None (occurrence: None)
  Receive Date: 20060424
  Receipt Date: 20060406
  Transmission Date: 20061013
  Serious: Yes (Hospitalization)
  Sender: FDA-Public Use
  Company Number: US200604002163

PATIENT
  Age: 75 Year
  Sex: Female

DRUGS (2)
  1. CYMBALTA [Suspect]
  2. CIPROFLOXACIN HCL [Concomitant]

REACTIONS (3)
  - DRUG INTERACTION [None]
  - MANIA [None]
  - URINARY TRACT INFECTION [None]
